FAERS Safety Report 13175930 (Version 2)
Quarter: 2017Q1

REPORT INFORMATION
  Report Type: Spontaneous
  Country: US (occurrence: US)
  Receive Date: 20170201
  Receipt Date: 20170324
  Transmission Date: 20170428
  Serious: Yes (Death, Hospitalization, Other)
  Sender: FDA-Public Use
  Company Number: US-LANNETT COMPANY, INC.-US-2017LAN000442

PATIENT

DRUGS (2)
  1. LAMIVUDINE. [Suspect]
     Active Substance: LAMIVUDINE
     Dosage: UNK, HOME MEDICATION
     Route: 048
  2. LAMIVUDINE. [Suspect]
     Active Substance: LAMIVUDINE
     Indication: CHRONIC HEPATITIS B
     Dosage: 150 MG TABLETS, EVERY 24 HOURS
     Route: 048
     Dates: start: 20140725, end: 20140727

REACTIONS (13)
  - Organising pneumonia [Fatal]
  - Acute respiratory distress syndrome [Unknown]
  - Sepsis [Recovering/Resolving]
  - Pleuritic pain [Recovering/Resolving]
  - Respiratory failure [Fatal]
  - Productive cough [Recovering/Resolving]
  - End stage renal disease [Unknown]
  - Acute pulmonary oedema [Recovered/Resolved]
  - Nausea [Recovering/Resolving]
  - Carnitine deficiency [Recovered/Resolved]
  - Pneumonia escherichia [Recovering/Resolving]
  - Septic shock [Fatal]
  - Lethargy [Recovering/Resolving]
